FAERS Safety Report 7457728-9 (Version None)
Quarter: 2011Q1

REPORT INFORMATION
  Report Type: 
  Country: None (occurrence: None)
  Receive Date: 20110302
  Receipt Date: 20101026
  Transmission Date: 20110831
  Serious: Yes (Hospitalization, Other)
  Sender: FDA-Public Use
  Company Number: 163-21880-10090260

PATIENT
  Age: 72 Year
  Sex: Female
  Weight: 88.6 kg

DRUGS (21)
  1. ZESTRIL [Concomitant]
  2. MULTAQ (DRONEDARONE HYDROCHLORIDE) [Concomitant]
  3. RYTHMOL [Concomitant]
  4. SIMVASTATIN [Concomitant]
  5. VITAMIN D [Concomitant]
  6. CALCIUM +D (OS-CAL) [Concomitant]
  7. ASCORBIC ACID [Concomitant]
  8. LIPITOR [Concomitant]
  9. SLOW FE (FERROUS SULFATE) [Concomitant]
  10. MULTIVITAMIN [Concomitant]
  11. SYNTHROID [Concomitant]
  12. GLUCOSAMINE CHONDROITIN (GLUCOSAMINE W/CHONDROITIN SULFATE) [Concomitant]
  13. LOPRESSOR [Concomitant]
  14. COUMADIN [Concomitant]
  15. NEUPOGEN [Concomitant]
  16. REVLIMID [Suspect]
     Indication: MYELODYSPLASTIC SYNDROME
     Dosage: 10 MG, 1 IN 1 D, PO, 2.5 MG, 1 IN 1 D, PO
     Route: 048
     Dates: start: 20100608
  17. REVLIMID [Suspect]
     Indication: MYELODYSPLASTIC SYNDROME
     Dosage: 10 MG, 1 IN 1 D, PO, 2.5 MG, 1 IN 1 D, PO
     Route: 048
     Dates: start: 20100101
  18. HYDROCORTONE [Concomitant]
  19. ARANESP [Concomitant]
  20. HYDROCHLOROTHIAZIDE [Concomitant]
  21. ALEVE [Concomitant]

REACTIONS (4)
  - JOINT SWELLING [None]
  - ATRIAL FIBRILLATION [None]
  - DIZZINESS [None]
  - FATIGUE [None]
